FAERS Safety Report 20556659 (Version 1)
Quarter: 2022Q1

REPORT INFORMATION
  Report Type: Spontaneous
  Country: US (occurrence: US)
  Receive Date: 20220307
  Receipt Date: 20220307
  Transmission Date: 20220423
  Serious: No
  Sender: FDA-Public Use
  Company Number: ENDG21-02229

PATIENT
  Sex: Male

DRUGS (8)
  1. DANTRIUM [Suspect]
     Active Substance: DANTROLENE SODIUM
     Indication: Product used for unknown indication
     Dosage: UNK UNKNOWN, UNKNOWN
     Route: 065
     Dates: start: 20200812
  2. BACLOFEN [Concomitant]
     Active Substance: BACLOFEN
     Indication: Product used for unknown indication
     Dosage: UNK UNKNOWN, UNKNOWN
     Route: 065
  3. ZANAFLEX [Concomitant]
     Active Substance: TIZANIDINE HYDROCHLORIDE
     Indication: Product used for unknown indication
     Dosage: UNK UNKNOWN, UNKNOWN
     Route: 065
  4. GABAPENTIN [Concomitant]
     Active Substance: GABAPENTIN
     Indication: Product used for unknown indication
     Dosage: UNK UNKNOWN, UNKNOWN
     Route: 065
  5. METFORMIN [Concomitant]
     Active Substance: METFORMIN HYDROCHLORIDE
     Indication: Product used for unknown indication
     Dosage: UNK UNKNOWN, UNKNOWN
     Route: 065
  6. INSULIN NOS [Concomitant]
     Active Substance: INSULIN NOS
     Indication: Product used for unknown indication
     Dosage: UNK UNKNOWN, UNKNOWN
     Route: 065
  7. COLACE [Concomitant]
     Active Substance: DOCUSATE SODIUM
     Indication: Product used for unknown indication
     Dosage: UNK UNKNOWN, UNKNOWN
     Route: 065
  8. MIRALAX [Concomitant]
     Active Substance: POLYETHYLENE GLYCOL 3350
     Indication: Product used for unknown indication
     Dosage: UNK UNKNOWN, UNKNOWN
     Route: 065

REACTIONS (2)
  - Asthenia [Unknown]
  - Drug ineffective [Unknown]
